FAERS Safety Report 9781921 (Version 2)
Quarter: 2014Q1

REPORT INFORMATION
  Report Type: Spontaneous
  Country: US (occurrence: US)
  Receive Date: 20131225
  Receipt Date: 20140120
  Transmission Date: 20141002
  Serious: No
  Sender: FDA-Public Use
  Company Number: US-B.I. PHARMACEUTICALS,INC./RIDGEFIELD-2013-BI-42072BP

PATIENT
  Age: 50 Year
  Sex: Male
  Weight: 84 kg

DRUGS (9)
  1. TRADJENTA [Suspect]
     Indication: TYPE 2 DIABETES MELLITUS
     Dosage: 5 MG
     Route: 048
     Dates: start: 201308
  2. ISENTRESS [Concomitant]
     Indication: HIV INFECTION
     Dosage: 800 MG
     Route: 048
     Dates: start: 2011
  3. ISENTRESS [Concomitant]
     Dosage: 400 MG
     Route: 048
  4. CRESTOR [Concomitant]
     Indication: HYPERTRIGLYCERIDAEMIA
     Dosage: 20 MG
     Route: 048
     Dates: start: 2008
  5. LISINOPRIL [Concomitant]
     Indication: RENAL DISORDER
     Dosage: 10 MG
     Route: 048
     Dates: start: 201309
  6. LISINOPRIL [Concomitant]
     Indication: DIABETES MELLITUS
  7. TRUVADA [Concomitant]
     Indication: HIV INFECTION
     Dosage: 300 MG
     Route: 048
     Dates: start: 2010
  8. LOVAZA [Concomitant]
     Indication: SUPPLEMENTATION THERAPY
     Dosage: 2 G
     Route: 048
     Dates: start: 2009
  9. LOVAZA [Concomitant]
     Indication: HYPERLIPIDAEMIA

REACTIONS (3)
  - Rash pruritic [Not Recovered/Not Resolved]
  - Dry skin [Not Recovered/Not Resolved]
  - Rash erythematous [Not Recovered/Not Resolved]
